FAERS Safety Report 24917549 (Version 1)
Quarter: 2025Q1

REPORT INFORMATION
  Report Type: Spontaneous
  Country: US (occurrence: US)
  Receive Date: 20250203
  Receipt Date: 20250203
  Transmission Date: 20250408
  Serious: Yes (Disabling)
  Sender: MYLAN
  Company Number: US-MYLANLABS-2025M1008617

PATIENT
  Sex: Male

DRUGS (1)
  1. DILANTIN [Suspect]
     Active Substance: PHENYTOIN
     Indication: Product used for unknown indication
     Route: 065

REACTIONS (6)
  - Musculoskeletal disorder [Unknown]
  - Pain [Unknown]
  - Bone pain [Unknown]
  - Back pain [Unknown]
  - Speech disorder [Unknown]
  - Osteoporosis [Unknown]
